FAERS Safety Report 11193749 (Version 2)
Quarter: 2015Q2

REPORT INFORMATION
  Report Type: Spontaneous
  Country: AR (occurrence: AR)
  Receive Date: 20150616
  Receipt Date: 20150629
  Transmission Date: 20150821
  Serious: Yes (Other)
  Sender: FDA-Public Use
  Company Number: CHPA2015AR007223

PATIENT
  Sex: Female

DRUGS (6)
  1. NICOTINELL [Suspect]
     Active Substance: NICOTINE
     Dosage: 1 MG, 3 DAILY
     Route: 065
     Dates: start: 2013, end: 201505
  2. NICOTINELL [Suspect]
     Active Substance: NICOTINE
     Indication: SMOKING CESSATION THERAPY
     Dosage: 2 MG, 3 DAILY
     Route: 065
     Dates: start: 2013, end: 201505
  3. NICOTINELL [Suspect]
     Active Substance: NICOTINE
     Dosage: 4 MG, 5 DAILY
     Route: 065
     Dates: start: 2013, end: 201505
  4. TELMISARTAN. [Concomitant]
     Active Substance: TELMISARTAN
     Indication: PRODUCT USED FOR UNKNOWN INDICATION
     Dosage: 40 MG, UNK
     Route: 065
  5. NICOTINELL [Suspect]
     Active Substance: NICOTINE
     Indication: SMOKING CESSATION THERAPY
     Dosage: 2 MG, 5 DAILY
     Route: 065
     Dates: start: 2013, end: 201505
  6. HYDROCHLOROTHIAZIDE. [Concomitant]
     Active Substance: HYDROCHLOROTHIAZIDE
     Indication: PRODUCT USED FOR UNKNOWN INDICATION
     Dosage: 12.5 MG, UNK
     Route: 065

REACTIONS (6)
  - Drug dependence [Unknown]
  - Hyperphagia [Unknown]
  - Weight increased [Unknown]
  - Drug withdrawal syndrome [Recovering/Resolving]
  - Anxiety [Unknown]
  - Wrong technique in drug usage process [Unknown]

NARRATIVE: CASE EVENT DATE: 2013
